FAERS Safety Report 14558298 (Version 1)
Quarter: 2018Q1

REPORT INFORMATION
  Report Type: Report from Study
  Country: MX (occurrence: MX)
  Receive Date: 20180221
  Receipt Date: 20180221
  Transmission Date: 20180509
  Serious: Yes (Death)
  Sender: FDA-Public Use
  Company Number: PHHY2018MX028526

PATIENT
  Sex: Male

DRUGS (6)
  1. TASEDAN [Concomitant]
     Indication: SLEEP DISORDER
     Dosage: UNK
     Route: 065
     Dates: start: 20180125
  2. LANTUS [Concomitant]
     Active Substance: INSULIN GLARGINE
     Indication: DIABETES MELLITUS
     Dosage: 25 U, QD
     Route: 065
     Dates: start: 20170201
  3. LASILACTON [Concomitant]
     Active Substance: FUROSEMIDE\SPIRONOLACTONE
     Indication: POLYURIA
     Dosage: 2 OT, QD
     Route: 065
     Dates: start: 20170801
  4. TRAJENTA [Concomitant]
     Active Substance: LINAGLIPTIN
     Indication: DIABETES MELLITUS
     Dosage: 1 OT, QD
     Route: 065
     Dates: start: 20170801
  5. ENTRESTO [Suspect]
     Active Substance: SACUBITRIL\VALSARTAN
     Dosage: 1 DF (100 MG), Q12H
     Route: 048
     Dates: start: 20180101
  6. ENTRESTO [Suspect]
     Active Substance: SACUBITRIL\VALSARTAN
     Indication: CARDIAC DISORDER
     Dosage: 1 DF (50 MG), Q12H
     Route: 048
     Dates: start: 20170801, end: 20180101

REACTIONS (2)
  - Aspiration bronchial [Fatal]
  - Product use in unapproved indication [Unknown]
